FAERS Safety Report 6759905-9 (Version None)
Quarter: 2010Q2

REPORT INFORMATION
  Report Type: 
  Country: None (occurrence: None)
  Receive Date: 20100608
  Receipt Date: 20100601
  Transmission Date: 20101027
  Serious: Yes (Death, Hospitalization)
  Sender: FDA-Public Use
  Company Number: CA-CELGENEUS-028-21880-10040052

PATIENT
  Sex: Male

DRUGS (5)
  1. REVLIMID [Suspect]
     Indication: MULTIPLE MYELOMA
     Route: 048
     Dates: start: 20091007, end: 20100101
  2. REVLIMID [Suspect]
     Route: 048
     Dates: start: 20090914
  3. WARFARIN SODIUM [Concomitant]
     Route: 065
     Dates: start: 20050101
  4. DECADRON [Concomitant]
     Indication: DRUG USE FOR UNKNOWN INDICATION
     Route: 065
     Dates: start: 20090901, end: 20100101
  5. DECADRON [Concomitant]
     Route: 065
     Dates: start: 20090801, end: 20090901

REACTIONS (4)
  - CELLULITIS [None]
  - MULTIPLE MYELOMA [None]
  - PSEUDOMONAL SEPSIS [None]
  - PULMONARY EMBOLISM [None]
